FAERS Safety Report 5907767-1 (Version None)
Quarter: 2008Q4

REPORT INFORMATION
  Report Type: 
  Country: None (occurrence: None)
  Receive Date: 20081003
  Receipt Date: 20081001
  Transmission Date: 20090506
  Serious: Yes (Hospitalization)
  Sender: FDA-Public Use
  Company Number: JP-BRISTOL-MYERS SQUIBB COMPANY-14251565

PATIENT
  Age: 71 Year
  Sex: Female

DRUGS (11)
  1. TAXOL [Suspect]
     Indication: BREAST CANCER
     Dosage: INITIATED:27SEP07-140MG/D RECENT INFUSION: 19JUN08 14AUG08-DAY15 CYC12;96MG/D
     Route: 042
     Dates: start: 20080619, end: 20080619
  2. AVASTIN [Suspect]
     Indication: BREAST CANCER
     Dosage: INITIATED:27SEP07; RECENT INFUSION: 19JUN08 14AUG08 - DAY15 CYC 12;499M/D 28AUG08 - 13TH COURSE
     Route: 042
     Dates: start: 20080619, end: 20080619
  3. RILMAZAFONE HCL [Concomitant]
  4. GLIMEPIRIDE [Concomitant]
  5. LOXOPROFEN SODIUM [Concomitant]
  6. REBAMIPIDE [Concomitant]
  7. MAGNESIUM HYDROXIDE TAB [Concomitant]
  8. L-CARBOCISTEINE [Concomitant]
  9. EPRAZINONE HCL [Concomitant]
  10. IODINE [Concomitant]
  11. CODEINE PHOSPHATE [Concomitant]

REACTIONS (4)
  - BREAST CANCER [None]
  - CATARACT [None]
  - DYSPNOEA [None]
  - VOCAL CORD PARALYSIS [None]
